FAERS Safety Report 6886340-5 (Version None)
Quarter: 2010Q3

REPORT INFORMATION
  Report Type: 
  Country: None (occurrence: None)
  Receive Date: 20100729
  Receipt Date: 20080501
  Transmission Date: 20110219
  Serious: No
  Sender: FDA-Public Use
  Company Number: US-PFIZER INC-2008028316

PATIENT
  Sex: Male
  Weight: 86.4 kg

DRUGS (2)
  1. CELEBREX [Suspect]
     Indication: ARTHRALGIA
     Dates: start: 20080328
  2. CELEBREX [Suspect]
     Indication: BONE PAIN

REACTIONS (3)
  - ABDOMINAL PAIN UPPER [None]
  - AGITATION [None]
  - DIZZINESS [None]
